FAERS Safety Report 16230626 (Version 1)
Quarter: 2019Q2

REPORT INFORMATION
  Report Type: Spontaneous
  Country: US (occurrence: US)
  Receive Date: 20190423
  Receipt Date: 20190423
  Transmission Date: 20190711
  Serious: No
  Sender: FDA-Public Use
  Company Number: US-WALGREENS PREMIER BRANDS OF AMERICA INC.-2066146

PATIENT
  Sex: Male

DRUGS (3)
  1. LIQUID WART REMOVER (SALICYLIC ACID) [Suspect]
     Active Substance: SALICYLIC ACID
     Indication: SKIN PAPILLOMA
     Route: 003
     Dates: start: 20190301, end: 20190305
  2. ZOLOFT [Concomitant]
     Active Substance: SERTRALINE HYDROCHLORIDE
     Route: 002
  3. SILVADENE [Concomitant]
     Active Substance: SILVER SULFADIAZINE
     Route: 003

REACTIONS (1)
  - Thermal burn [None]

NARRATIVE: CASE EVENT DATE: 20190301
